FAERS Safety Report 10588310 (Version 1)
Quarter: 2014Q4

REPORT INFORMATION
  Report Type: Spontaneous
  Country: IT (occurrence: IT)
  Receive Date: 20141117
  Receipt Date: 20141117
  Transmission Date: 20150529
  Serious: Yes (Other)
  Sender: FDA-Public Use
  Company Number: IT-ASTRAZENECA-2014SE84944

PATIENT
  Age: 18856 Day
  Sex: Female

DRUGS (13)
  1. MINIAS [Suspect]
     Active Substance: LORMETAZEPAM
     Indication: PERSONALITY DISORDER
     Dates: start: 20140103, end: 20140103
  2. ENTACT [Concomitant]
     Active Substance: ESCITALOPRAM OXALATE
  3. SEROQUEL [Suspect]
     Active Substance: QUETIAPINE FUMARATE
     Indication: INTENTIONAL SELF-INJURY
     Route: 048
     Dates: start: 20140109, end: 20140109
  4. TAVOR [Suspect]
     Active Substance: LORAZEPAM
     Indication: INTENTIONAL SELF-INJURY
     Route: 048
     Dates: start: 20140109, end: 20140109
  5. MINIAS [Suspect]
     Active Substance: LORMETAZEPAM
     Indication: INTENTIONAL SELF-INJURY
     Dosage: 2.5 MG/ML, 80 GTT DAILY
     Route: 048
     Dates: start: 20140109, end: 20140109
  6. EN [Concomitant]
     Active Substance: DELORAZEPAM
  7. MODURETIC 5-50 [Concomitant]
     Active Substance: AMILORIDE HYDROCHLORIDE\HYDROCHLOROTHIAZIDE
  8. MINIAS [Suspect]
     Active Substance: LORMETAZEPAM
     Indication: PERSONALITY DISORDER
     Dosage: 2.5 MG/ML, 80 GTT DAILY
     Route: 048
     Dates: start: 20140109, end: 20140109
  9. ATORVASTATIN [Concomitant]
     Active Substance: ATORVASTATIN
     Indication: HYPERCHOLESTEROLAEMIA
  10. LORAZEPAM. [Concomitant]
     Active Substance: LORAZEPAM
  11. IRBESARTAN. [Concomitant]
     Active Substance: IRBESARTAN
     Indication: HYPERTENSION
  12. MINIAS [Suspect]
     Active Substance: LORMETAZEPAM
     Indication: INTENTIONAL SELF-INJURY
     Dates: start: 20140103, end: 20140103
  13. STILNOX [Concomitant]
     Active Substance: ZOLPIDEM TARTRATE

REACTIONS (3)
  - Vomiting [Recovering/Resolving]
  - Drug abuse [Recovering/Resolving]
  - Sopor [Recovering/Resolving]

NARRATIVE: CASE EVENT DATE: 20140109
